FAERS Safety Report 5832725-5 (Version None)
Quarter: 2008Q3

REPORT INFORMATION
  Report Type: 
  Country: None (occurrence: None)
  Receive Date: 20080804
  Receipt Date: 20080722
  Transmission Date: 20090109
  Serious: Yes (Life-Threatening, Hospitalization, Other)
  Sender: FDA-Public Use
  Company Number: PHHO1999GB04937

PATIENT
  Sex: Female
  Weight: 61.5 kg

DRUGS (5)
  1. RAD 666 RAD+ [Suspect]
     Dosage: 0.75 MG, BID
     Route: 048
     Dates: start: 19990518, end: 19990930
  2. NEORAL [Suspect]
     Dosage: UNSPECIFIED
     Route: 048
     Dates: start: 19990518, end: 19990928
  3. NEORAL [Suspect]
     Dosage: UNSPECIFIED
     Route: 048
     Dates: start: 20000124
  4. PREDNISONE [Concomitant]
  5. SANDIMMUNE [Suspect]
     Dosage: UNSPECIFIED
     Route: 042
     Dates: start: 19990929, end: 19991012

REACTIONS (4)
  - GASTROINTESTINAL HAEMORRHAGE [None]
  - HAEMOLYTIC URAEMIC SYNDROME [None]
  - PSEUDOLYMPHOMA [None]
  - SEPSIS [None]
